FAERS Safety Report 12195728 (Version 5)
Quarter: 2016Q4

REPORT INFORMATION
  Report Type: Report from Study
  Country: US (occurrence: US)
  Receive Date: 20160321
  Receipt Date: 20161123
  Transmission Date: 20170207
  Serious: No
  Sender: FDA-Public Use
  Company Number: PHEH2016US006769

PATIENT
  Age: 12 Year
  Sex: Male

DRUGS (2)
  1. ILARIS [Suspect]
     Active Substance: CANAKINUMAB
     Dosage: 150 MG,  EVERY 8 WEEKS
     Route: 058
  2. ILARIS [Suspect]
     Active Substance: CANAKINUMAB
     Indication: JUVENILE IDIOPATHIC ARTHRITIS
     Dosage: 150 MG, EVERY 6 WEEKS
     Route: 058

REACTIONS (1)
  - Inappropriate schedule of drug administration [Unknown]

NARRATIVE: CASE EVENT DATE: 20160426
